FAERS Safety Report 9359824 (Version 10)
Quarter: 2015Q1

REPORT INFORMATION
  Report Type: Report from Study
  Country: US (occurrence: US)
  Receive Date: 20130621
  Receipt Date: 20150219
  Transmission Date: 20150721
  Serious: Yes (Death, Hospitalization)
  Sender: FDA-Public Use
  Company Number: US-ROCHE-1237978

PATIENT
  Age: 62 Year
  Sex: Female
  Weight: 56.8 kg

DRUGS (13)
  1. TAXOTERE [Suspect]
     Active Substance: DOCETAXEL
     Indication: BREAST CANCER
     Dosage: DATE OF LAST DOSE PRIOR TO SAE:26/MAR/2013
     Route: 042
     Dates: start: 20130212, end: 20130410
  2. CARBOPLATIN. [Suspect]
     Active Substance: CARBOPLATIN
     Indication: BREAST CANCER
     Dosage: DOSE: 6 AUC, DATE OF LAST DOSE PRIOR TO SAE: 26/MAR/2013
     Route: 042
     Dates: start: 20130212, end: 20130410
  3. CARAFATE [Concomitant]
     Active Substance: SUCRALFATE
     Dosage: DOSE: 110 MG/ML
     Route: 065
     Dates: start: 20130409
  4. TRASTUZUMAB [Suspect]
     Active Substance: TRASTUZUMAB
     Indication: BREAST CANCER
     Dosage: DATE OF LAST DOSE PRIOR TO SAE: 26/MAR/2013
     Route: 042
     Dates: start: 20130212, end: 20130410
  5. XANAX [Concomitant]
     Active Substance: ALPRAZOLAM
     Route: 065
     Dates: start: 2003
  6. ATIVAN [Concomitant]
     Active Substance: LORAZEPAM
     Route: 065
     Dates: start: 2003
  7. OPIUM TINCTURE [Concomitant]
     Active Substance: OPIUM TINCTURE
  8. LOPERAMIDE [Concomitant]
     Active Substance: LOPERAMIDE
  9. MEGACE ES [Concomitant]
     Active Substance: MEGESTROL ACETATE
     Dosage: DOSE: 625 MG/ML
     Route: 065
     Dates: start: 20130305
  10. ULTRAM [Concomitant]
     Active Substance: TRAMADOL HYDROCHLORIDE
     Route: 065
     Dates: start: 20130212
  11. DILTIAZEM [Concomitant]
     Active Substance: DILTIAZEM
     Route: 065
     Dates: start: 2003
  12. NEXIUM [Concomitant]
     Active Substance: ESOMEPRAZOLE MAGNESIUM
     Route: 065
     Dates: start: 20130324
  13. POTASSIUM GUAIACOLSULFONATE [Concomitant]
     Active Substance: POTASSIUM GUAIACOLSULFONATE
     Route: 065

REACTIONS (6)
  - Vomiting [Fatal]
  - Small intestinal obstruction [Not Recovered/Not Resolved]
  - Colitis [Recovered/Resolved]
  - Gastroenteritis radiation [Recovered/Resolved]
  - Clostridium difficile colitis [Recovered/Resolved]
  - Gastroenteritis [Recovered/Resolved]

NARRATIVE: CASE EVENT DATE: 20130410
